FAERS Safety Report 7219615-0 (Version None)
Quarter: 2011Q1

REPORT INFORMATION
  Report Type: 
  Country: None (occurrence: None)
  Receive Date: 20110111
  Receipt Date: 20110106
  Transmission Date: 20110831
  Serious: Yes (Death)
  Sender: FDA-Public Use
  Company Number: DE-ELI_LILLY_AND_COMPANY-DE201101001462

PATIENT
  Age: 71 Year
  Sex: Male
  Weight: 96 kg

DRUGS (5)
  1. ASPISOL [Concomitant]
     Dosage: 500 MG, UNK
  2. HEPARIN [Concomitant]
  3. EPTIFIBATIDE [Concomitant]
  4. PRASUGREL HYDROCHLORIDE [Suspect]
     Indication: ACUTE CORONARY SYNDROME
     Dosage: 60 MG, UNK
     Dates: start: 20100916
  5. PRASUGREL HYDROCHLORIDE [Suspect]
     Dosage: 100 MG, UNK

REACTIONS (1)
  - CARDIOGENIC SHOCK [None]
